FAERS Safety Report 4919400-6 (Version None)
Quarter: 2006Q1

REPORT INFORMATION
  Report Type: 
  Country: None (occurrence: None)
  Receive Date: 20060222
  Receipt Date: 20041115
  Transmission Date: 20060701
  Serious: Yes (Hospitalization, Other)
  Sender: FDA-Public Use
  Company Number: US-MERCK-0411USA02714

PATIENT
  Age: 53 Year
  Sex: Female
  Weight: 136 kg

DRUGS (2)
  1. VIOXX [Suspect]
     Route: 048
     Dates: start: 20031008, end: 20040125
  2. TYLENOL [Concomitant]
     Route: 065

REACTIONS (2)
  - CARDIAC FAILURE CONGESTIVE [None]
  - CEREBROVASCULAR ACCIDENT [None]
